FAERS Safety Report 7629726-3 (Version None)
Quarter: 2011Q3

REPORT INFORMATION
  Report Type: 
  Country: None (occurrence: None)
  Receive Date: 20110722
  Receipt Date: 20110714
  Transmission Date: 20111222
  Serious: Yes (Hospitalization)
  Sender: FDA-Public Use
  Company Number: DK-GLAXOSMITHKLINE-B0734469A

PATIENT
  Sex: Female

DRUGS (3)
  1. ALLI [Suspect]
     Indication: OVERWEIGHT
     Route: 048
     Dates: start: 20110101, end: 20110516
  2. SEROQUEL [Concomitant]
     Indication: DEPRESSION
     Route: 065
     Dates: start: 20080101, end: 20110501
  3. ESCITALOPRAM [Concomitant]
     Indication: DEPRESSION
     Route: 065
     Dates: start: 20020101, end: 20110601

REACTIONS (1)
  - HEPATITIS [None]
